FAERS Safety Report 8796426 (Version 1)
Quarter: 2012Q4

REPORT INFORMATION
  Report Type: 
  Country: GB (occurrence: GB)
  Receive Date: 20120919
  Receipt Date: 20120919
  Transmission Date: 20130627
  Serious: Yes (Death)
  Sender: FDA-Public Use
  Company Number: GB-BAXTER-2012BAX017077

PATIENT
  Age: 28 Year
  Sex: Male

DRUGS (6)
  1. FEIBA [Suspect]
     Indication: MUSCLE BLEEDING
     Dates: start: 20100908
  2. FEIBA [Suspect]
     Indication: HEMOPHILIA A
  3. NOVOSEVEN [Suspect]
     Indication: MUSCLE BLEEDING
     Dates: start: 20100908
  4. NOVOSEVEN [Suspect]
     Indication: HEMOPHILIA A
  5. OCTANATE [Suspect]
     Indication: HEMOPHILIA A WITH ANTI FACTOR VIII
     Route: 042
     Dates: start: 200911, end: 201009
  6. OCTANATE [Suspect]
     Indication: IMMUNE TOLERANCE INDUCTION

REACTIONS (4)
  - Cardio-respiratory arrest [Fatal]
  - Haemorrhage [Fatal]
  - Drug ineffective [Unknown]
  - Muscle haemorrhage [None]
